FAERS Safety Report 8867103 (Version 1)
Quarter: 2012Q4

REPORT INFORMATION
  Report Type: 
  Country: US (occurrence: US)
  Receive Date: 20121025
  Receipt Date: 20121025
  Transmission Date: 20130627
  Serious: No
  Sender: FDA-Public Use
  Company Number: US-AMGEN-USASP2012014893

PATIENT
  Age: 61 Year
  Sex: Female
  Weight: 58.96 kg

DRUGS (7)
  1. ENBREL [Suspect]
     Indication: PRODUCT USED FOR UNKNOWN INDICATION
     Dosage: 50 mg, qwk
  2. SYNTHROID [Concomitant]
     Dosage: 88 mug, UNK
  3. VICODIN [Concomitant]
  4. LIPITOR [Concomitant]
     Dosage: 10 mg, UNK
  5. SINGULAIR [Concomitant]
     Dosage: 10 mg, UNK
  6. ADVAIR [Concomitant]
  7. COMBIVENT [Concomitant]

REACTIONS (2)
  - Pain in extremity [Unknown]
  - Local swelling [Unknown]
